FAERS Safety Report 6667596-0 (Version None)
Quarter: 2010Q2

REPORT INFORMATION
  Report Type: 
  Country: None (occurrence: None)
  Receive Date: 20100405
  Receipt Date: 20100329
  Transmission Date: 20101027
  Serious: Yes (Hospitalization)
  Sender: FDA-Public Use
  Company Number: US-ELI_LILLY_AND_COMPANY-US201003007962

PATIENT
  Sex: Male

DRUGS (3)
  1. ZYPREXA ZYDIS [Suspect]
     Indication: BIPOLAR I DISORDER
     Dosage: 10 MG, UNK
  2. ZYPREXA [Suspect]
     Dosage: 15 MG, UNK
  3. LITHIUM [Concomitant]

REACTIONS (7)
  - ABNORMAL BEHAVIOUR [None]
  - AGGRESSION [None]
  - AGITATION [None]
  - DRUG INEFFECTIVE [None]
  - INSOMNIA [None]
  - MOOD SWINGS [None]
  - TREMOR [None]
